FAERS Safety Report 7592053-7 (Version None)
Quarter: 2011Q2

REPORT INFORMATION
  Report Type: 
  Country: None (occurrence: None)
  Receive Date: 20110628
  Receipt Date: 20110620
  Transmission Date: 20111010
  Serious: Yes (Hospitalization)
  Sender: FDA-Public Use
  Company Number: 2011SP028540

PATIENT
  Age: 60 Year
  Sex: Male

DRUGS (12)
  1. PLAVIX [Concomitant]
  2. FLUVASTATIN [Concomitant]
  3. ASPIRIN [Concomitant]
  4. JANUVIA [Concomitant]
  5. SACCHAROMYCES BOULARDII [Concomitant]
  6. AMARYL [Concomitant]
  7. METFORMIN HCL [Concomitant]
  8. IRBESARTAN [Concomitant]
  9. DESLORATADINE [Suspect]
     Indication: PRURITUS
     Dosage: PO
     Route: 048
     Dates: start: 20110121, end: 20110131
  10. PYOSTACINE (PRISTINAMYCIN) [Suspect]
     Indication: ERYSIPELAS
     Dosage: PO
     Route: 048
     Dates: start: 20110121, end: 20110131
  11. LOPRESSOR [Concomitant]
  12. BISOPROLOL FUMARATE [Concomitant]

REACTIONS (5)
  - EOSINOPHILIA [None]
  - PRURITUS [None]
  - RASH MORBILLIFORM [None]
  - BLISTER [None]
  - WEIGHT INCREASED [None]
